FAERS Safety Report 8213655-0 (Version None)
Quarter: 2012Q1

REPORT INFORMATION
  Report Type: 
  Country: None (occurrence: None)
  Receive Date: 20120315
  Receipt Date: 20120314
  Transmission Date: 20120608
  Serious: Yes (Death)
  Sender: FDA-Public Use
  Company Number: TW-BAXTER-2012BH007703

PATIENT

DRUGS (4)
  1. DIANEAL [Suspect]
     Indication: PERITONEAL DIALYSIS
     Route: 033
     Dates: start: 20100901
  2. DIANEAL [Suspect]
     Indication: PERITONEAL DIALYSIS
     Route: 033
     Dates: start: 20100901
  3. DIANEAL [Suspect]
     Route: 033
     Dates: start: 20100901
  4. DIANEAL [Suspect]
     Route: 033
     Dates: start: 20100901

REACTIONS (1)
  - DEATH [None]
